FAERS Safety Report 9449696 (Version 2)
Quarter: 2013Q3

REPORT INFORMATION
  Report Type: Report from Study
  Country: US (occurrence: US)
  Receive Date: 20130809
  Receipt Date: 20130909
  Transmission Date: 20140515
  Serious: Yes (Hospitalization)
  Sender: FDA-Public Use
  Company Number: US-ROCHE-1258296

PATIENT
  Sex: Female

DRUGS (24)
  1. RITUXAN [Suspect]
     Indication: POLYNEUROPATHY
     Dosage: INJECTION THEN 825MG IV #1 INJ REF 1.
     Route: 042
  2. RITUXAN [Suspect]
     Indication: AUTONOMIC NEUROPATHY
  3. MONISTAT [Concomitant]
     Dosage: SUPPS-VAG SUP 200MG PV HS 3 DAYS
     Route: 065
     Dates: start: 20130704
  4. CLOTRIMAZOLE [Concomitant]
     Dosage: TRO 1 TABLET PO 5X/D
     Route: 048
  5. ALPHA LIPOIC ACID [Concomitant]
     Route: 048
  6. SOLIFENACIN SUCCINATE [Concomitant]
     Route: 048
  7. RITALIN [Concomitant]
     Dosage: TWICE A DAY
     Route: 048
  8. RESTASIS [Concomitant]
     Dosage: EMU 1 DROP OU Q12H
     Route: 065
  9. BUDESONIDE [Concomitant]
     Dosage: 0.25MG /2ML INHA 1 NEB INHBI
     Route: 065
  10. BENZONATATE [Concomitant]
     Dosage: THRICE A DAY #6 CAPSULE
     Route: 048
  11. ALBUTEROL [Concomitant]
     Dosage: 3 ML AMPUL. NEB 1 NEB HHN QID #120 NEB
     Route: 065
  12. VITAMIN C [Concomitant]
     Route: 048
  13. OXYCODONE [Concomitant]
     Dosage: TAB CR 10MG BIDP
     Route: 048
     Dates: start: 20130531
  14. ALBUTEROL SULFATE [Concomitant]
     Dosage: NEB 1 VIAL NEB Q4H #1 BOX
     Route: 065
     Dates: start: 20130425
  15. ALBUTEROL SULFATE [Concomitant]
     Dosage: HFA-AER 2 PUFFS INH PRN #1 INHALER
     Route: 065
     Dates: start: 20130328
  16. TRAMADOL HCL [Concomitant]
     Dosage: TBMP. 24HR 1-2 TAB PO DAILY
     Route: 048
     Dates: start: 20130416
  17. FLUTICASONE PROPIONATE [Concomitant]
     Dosage: MCG- 120 PUFFS/INHALER PUFF 1 PUFF INH BID #10.6GM
     Route: 065
     Dates: start: 20130328
  18. GLUCOSAMINE SULFATE [Concomitant]
     Route: 048
     Dates: start: 20121112
  19. COLACE [Concomitant]
     Dosage: #30 CAP
     Route: 048
     Dates: start: 20121112
  20. ZOLPIDEM TARTRATE [Concomitant]
     Dosage: QHS
     Route: 048
     Dates: start: 20121112
  21. CALCIUM CARBONATE [Concomitant]
     Route: 048
     Dates: start: 20121112
  22. OMEGA 3 FATTY ACIDS [Concomitant]
     Route: 048
  23. VITAMIN D3 [Concomitant]
     Dosage: UNIT- 4000 IU PO DAILY
     Route: 048
     Dates: start: 20120215
  24. CELEXA (UNITED STATES) [Concomitant]
     Route: 048
     Dates: start: 20120124

REACTIONS (7)
  - Pain [Unknown]
  - Muscular weakness [Unknown]
  - Balance disorder [Unknown]
  - Urinary incontinence [Unknown]
  - Pollakiuria [Unknown]
  - Sensory disturbance [Unknown]
  - Abdominal discomfort [Unknown]
